FAERS Safety Report 11682652 (Version 10)
Quarter: 2017Q2

REPORT INFORMATION
  Report Type: Report from Study
  Country: JP (occurrence: JP)
  Receive Date: 20151029
  Receipt Date: 20170411
  Transmission Date: 20170829
  Serious: Yes (Death, Life-Threatening)
  Sender: FDA-Public Use
  Company Number: JP-EISAI MEDICAL RESEARCH-EC-2015-011616

PATIENT
  Age: 66 Year
  Sex: Male
  Weight: 56 kg

DRUGS (18)
  1. CARBOPLATIN. [Concomitant]
     Active Substance: CARBOPLATIN
     Indication: THYROID DISORDER
     Route: 065
     Dates: start: 20150806
  2. LENVIMA [Suspect]
     Active Substance: LENVATINIB
     Indication: ANAPLASTIC THYROID CANCER
     Route: 048
     Dates: start: 20150721, end: 20150804
  3. LENVIMA [Suspect]
     Active Substance: LENVATINIB
     Dosage: WEEK 17
     Route: 048
     Dates: start: 20151111, end: 20151127
  4. AZUNOL GARGLE [Concomitant]
  5. REBAMIPIDE [Concomitant]
     Active Substance: REBAMIPIDE
  6. ENSURE H [Concomitant]
  7. LENVIMA [Suspect]
     Active Substance: LENVATINIB
     Dosage: WEEK 20
     Route: 048
     Dates: start: 20151128, end: 20151228
  8. LENVIMA [Suspect]
     Active Substance: LENVATINIB
     Dosage: WEEK 24 - WEEK 28
     Route: 048
     Dates: start: 20151229, end: 201602
  9. PACLITAXEL. [Concomitant]
     Active Substance: PACLITAXEL
     Indication: THYROID DISORDER
     Route: 065
     Dates: start: 20150806
  10. MAGMITT [Concomitant]
     Active Substance: MAGNESIUM OXIDE
  11. ARCRANE [Concomitant]
  12. AZILVA [Concomitant]
     Active Substance: AZILSARTAN KAMEDOXOMIL
  13. LENVIMA [Suspect]
     Active Substance: LENVATINIB
     Route: 048
     Dates: start: 20150809, end: 20151024
  14. LOXOPROFEN [Concomitant]
     Active Substance: LOXOPROFEN
  15. LENVIMA [Suspect]
     Active Substance: LENVATINIB
     Dosage: WEEK 15
     Route: 048
     Dates: start: 20151029, end: 20151102
  16. POSTERISAN [Concomitant]
     Active Substance: LIDOCAINE
  17. LEVOTHYROXINE SODIUM HYDRATE [Concomitant]
     Active Substance: LEVOTHYROXINE SODIUM
  18. HIRUDOID [Concomitant]
     Active Substance: GLYCOSAMINOGLYCANS

REACTIONS (2)
  - Haemorrhoidal haemorrhage [Recovering/Resolving]
  - Malignant neoplasm progression [Fatal]

NARRATIVE: CASE EVENT DATE: 20151025
